FAERS Safety Report 5488417-8 (Version None)
Quarter: 2007Q3

REPORT INFORMATION
  Report Type: 
  Country: None (occurrence: None)
  Receive Date: 20070927
  Receipt Date: 20070716
  Transmission Date: 20080115
  Serious: No
  Sender: FDA-Public Use
  Company Number: US-CVT-070132

PATIENT
  Age: 88 Year
  Sex: Male
  Weight: 87.1 kg

DRUGS (10)
  1. RANEXA [Suspect]
     Dosage: 500 MG, BID, ORAL
     Route: 048
     Dates: start: 20070703
  2. ZOCOR [Concomitant]
  3. PRINIVIL [Concomitant]
  4. PRILOSEC [Concomitant]
  5. LASIX [Concomitant]
  6. ASPIRIN [Concomitant]
  7. NORVASC /00972401/ (AMLODIPINE) [Concomitant]
  8. NITROGLYCERIN [Concomitant]
  9. PLAVIX [Concomitant]
  10. HYTRIN [Concomitant]

REACTIONS (1)
  - NIGHT SWEATS [None]
